FAERS Safety Report 4607229-8 (Version None)
Quarter: 2005Q1

REPORT INFORMATION
  Report Type: 
  Country: None (occurrence: None)
  Receive Date: 20050309
  Receipt Date: 20050216
  Transmission Date: 20050727
  Serious: Yes (Death, Life-Threatening, Hospitalization, Disabling)
  Sender: FDA-Public Use
  Company Number: EWC050242814

PATIENT
  Age: 72 Year
  Sex: Male

DRUGS (24)
  1. ALIMTA [Suspect]
     Indication: NON-SMALL CELL LUNG CANCER
     Dosage: 1000 MG
     Dates: start: 20050118, end: 20050118
  2. VITAPLEX MINERAL [Concomitant]
  3. ASPIRIN [Concomitant]
  4. BEHEPAN (CYANOCOBALAMIN) [Concomitant]
  5. MONOKET [Concomitant]
  6. SELOKEN ZOC (METOPROLOL SUCCINATE) [Concomitant]
  7. SIMVASTATIN (SIMVASTATIN RATIOPHARM) [Concomitant]
  8. BETAPRED [Concomitant]
  9. IMPUGAN (FUROSEMIDE) [Concomitant]
  10. LANSOPRAZOLE [Concomitant]
  11. NITROLINGUAL [Concomitant]
  12. TRADOLAN (TRANADOL HYDROCHLORIDE) [Concomitant]
  13. ALVEDON (PARACETAMOL) [Concomitant]
  14. STESOLID (DIAZEPAM) [Concomitant]
  15. ZOPIKLON (ZOPICLONE) [Concomitant]
  16. FLUTIDE NASAL (FLUTICASONE PROPIONATE) [Concomitant]
  17. COCILLANA-ETYFIN [Concomitant]
  18. OMEPRAZOL (OMEPRAZOLE RATIOPHARM) [Concomitant]
  19. MYCOSTATIN (NYSTATIN USP 25) [Concomitant]
  20. LANACRIST (DIGOXIN -SANDOZ) [Concomitant]
  21. SOLU-CORTEF [Concomitant]
  22. PRIMAXIN [Concomitant]
  23. XILOCAIN (LIDOCAINE JELLY) [Concomitant]
  24. SOBRIL (OXAZEPAM) [Concomitant]

REACTIONS (7)
  - ATRIAL FIBRILLATION [None]
  - DYSPNOEA [None]
  - FEELING ABNORMAL [None]
  - HAEMOGLOBIN ABNORMAL [None]
  - INFECTION [None]
  - PLATELET COUNT DECREASED [None]
  - WHITE BLOOD CELL COUNT DECREASED [None]
